FAERS Safety Report 16656493 (Version 8)
Quarter: 2019Q4

REPORT INFORMATION
  Report Type: Report from Study
  Country: US (occurrence: US)
  Receive Date: 20190801
  Receipt Date: 20191112
  Transmission Date: 20200122
  Serious: Yes (Other)
  Sender: FDA-Public Use
  Company Number: US-PFIZER INC-2019327084

PATIENT
  Age: 73 Year
  Sex: Male

DRUGS (5)
  1. SUTENT [Suspect]
     Active Substance: SUNITINIB MALATE
     Dosage: 50 MG, CYCLIC (50 MG 4 WEEKS ON, 2 WEEKS OFF)
     Route: 048
     Dates: start: 20190913
  2. SUTENT [Suspect]
     Active Substance: SUNITINIB MALATE
     Dosage: 25 MG, CYCLIC (EVERY DAY FOR 4 WEEKS ON, 2 WEEKS OFF)
     Route: 048
     Dates: start: 20191025
  3. SUTENT [Suspect]
     Active Substance: SUNITINIB MALATE
     Dosage: 50 MG, CYCLIC (50 MG DAILY FOR 4 WEEKS ON, 2 WEEKS OFF )
     Route: 048
     Dates: start: 20190820, end: 20190828
  4. SUTENT [Suspect]
     Active Substance: SUNITINIB MALATE
     Indication: RENAL CELL CARCINOMA
     Dosage: 50 MG, CYCLIC (QD, 28 DAYS ON, 14 DAYS OFF)
     Route: 048
     Dates: start: 20190720, end: 20190809
  5. SUTENT [Suspect]
     Active Substance: SUNITINIB MALATE
     Dosage: 25 MG, CYCLIC (EVERY DAY, 4 WEEKS ON, 2 WEEKS OFF)
     Route: 048
     Dates: start: 20191009, end: 20191020

REACTIONS (13)
  - Peripheral swelling [Not Recovered/Not Resolved]
  - Hyperglycaemia [Unknown]
  - Gingival pain [Unknown]
  - Visual impairment [Unknown]
  - Pain in extremity [Unknown]
  - Dry mouth [Not Recovered/Not Resolved]
  - Pain [Unknown]
  - Nausea [Unknown]
  - Ageusia [Recovered/Resolved]
  - Hypertension [Unknown]
  - Stomatitis [Unknown]
  - Diarrhoea [Recovered/Resolved]
  - Mucosal inflammation [Unknown]

NARRATIVE: CASE EVENT DATE: 2019
